FAERS Safety Report 5231872-9 (Version None)
Quarter: 2007Q1

REPORT INFORMATION
  Report Type: 
  Country: None (occurrence: None)
  Receive Date: 20070206
  Receipt Date: 20070125
  Transmission Date: 20070707
  Serious: Yes (Other)
  Sender: FDA-Public Use
  Company Number: CA-PFIZER INC-2006150844

PATIENT
  Age: 46 Year
  Sex: Male

DRUGS (2)
  1. DEPO-TESTOSTERONE [Suspect]
     Indication: OLFACTO GENITAL DYSPLASIA
     Route: 030
  2. VALSARTAN [Concomitant]
     Route: 048
     Dates: start: 20050101

REACTIONS (6)
  - BACK PAIN [None]
  - BONE DENSITY DECREASED [None]
  - BONE PAIN [None]
  - FRACTURE [None]
  - HAND FRACTURE [None]
  - HERNIA [None]
